FAERS Safety Report 7280283-3 (Version None)
Quarter: 2011Q1

REPORT INFORMATION
  Report Type: 
  Country: None (occurrence: None)
  Receive Date: 20110208
  Receipt Date: 20101216
  Transmission Date: 20110831
  Serious: Yes (Hospitalization, Other)
  Sender: FDA-Public Use
  Company Number: US-BAYER-200943268NA

PATIENT
  Sex: Female
  Weight: 104 kg

DRUGS (6)
  1. PREDNISONE [Concomitant]
     Dosage: 10 MG, QD
     Route: 048
     Dates: start: 20080901
  2. DEPO-MEDROL [Concomitant]
     Dosage: 40 MG, UNK
     Route: 030
     Dates: start: 20080929
  3. PLAQUENIL [Concomitant]
     Dosage: 200 MG, QD
     Route: 048
     Dates: start: 20080901
  4. YASMIN [Suspect]
     Indication: PRODUCT USED FOR UNKNOWN INDICATION
  5. BUMEX [Concomitant]
     Indication: SWELLING
     Dosage: UNK
     Route: 048
     Dates: start: 20080901
  6. BUMEX [Concomitant]
     Indication: SYSTEMIC LUPUS ERYTHEMATOSUS

REACTIONS (2)
  - STRESS [None]
  - CHOLECYSTECTOMY [None]
